FAERS Safety Report 20089286 (Version 1)
Quarter: 2021Q4

REPORT INFORMATION
  Report Type: Spontaneous
  Country: NL (occurrence: NL)
  Receive Date: 20211119
  Receipt Date: 20211119
  Transmission Date: 20220304
  Serious: Yes (Other)
  Sender: FDA-Public Use
  Company Number: NL-LRB-00706384

PATIENT
  Age: 63 Year
  Sex: Male
  Weight: 89 kg

DRUGS (1)
  1. LISINOPRIL [Suspect]
     Active Substance: LISINOPRIL
     Indication: Blood pressure increased
     Dosage: 5 MILLIGRAM, ONCE A DAY(5MG 1X PER DAG)
     Route: 065
     Dates: start: 20210601, end: 20210827

REACTIONS (1)
  - Arrhythmia [Recovered/Resolved]

NARRATIVE: CASE EVENT DATE: 20210827
